FAERS Safety Report 5644287-6 (Version None)
Quarter: 2008Q1

REPORT INFORMATION
  Report Type: 
  Country: None (occurrence: None)
  Receive Date: 20080229
  Receipt Date: 20080221
  Transmission Date: 20080703
  Serious: Yes (Other)
  Sender: FDA-Public Use
  Company Number: PHFR2008GB00957

PATIENT
  Sex: Female

DRUGS (3)
  1. FEMARA [Suspect]
     Route: 065
  2. ZOMETA [Suspect]
     Indication: OSTEOPOROSIS
     Dosage: 1 MG, QMO
     Route: 065
  3. ZOMETA [Suspect]
     Dosage: 1 MG, QMO
     Route: 065

REACTIONS (4)
  - GASTROINTESTINAL DISORDER [None]
  - NAUSEA [None]
  - OSTEOPOROSIS [None]
  - TINNITUS [None]
